FAERS Safety Report 6107392-6 (Version None)
Quarter: 2009Q1

REPORT INFORMATION
  Report Type: 
  Country: None (occurrence: None)
  Receive Date: 20090309
  Receipt Date: 20090302
  Transmission Date: 20090719
  Serious: Yes (Life-Threatening, Hospitalization)
  Sender: FDA-Public Use
  Company Number: DK-NOVOPROD-284860

PATIENT
  Sex: Female

DRUGS (4)
  1. NORDITROPIN [Suspect]
     Indication: GROWTH HORMONE DEFICIENCY
     Dosage: .8 MG, QD
     Dates: start: 20090209, end: 20090211
  2. APYDAN                             /00596701/ [Concomitant]
  3. LAKTULOSE [Concomitant]
  4. ELTROXIN [Concomitant]

REACTIONS (1)
  - ACUTE HEPATIC FAILURE [None]
